FAERS Safety Report 20429037 (Version 1)
Quarter: 2022Q1

REPORT INFORMATION
  Report Type: Spontaneous
  Country: US (occurrence: None)
  Receive Date: 20220203
  Receipt Date: 20220203
  Transmission Date: 20220423
  Serious: Yes (Other)
  Sender: FDA-Public Use
  Company Number: None

PATIENT
  Age: 47 Year
  Sex: Female

DRUGS (12)
  1. SOTROVIMAB [Suspect]
     Active Substance: SOTROVIMAB
     Indication: COVID-19
     Dosage: OTHER FREQUENCY : ONCE;?
     Route: 042
     Dates: start: 20220118, end: 20220118
  2. acetaminophen 1,000 mg oral Every 4 hours PRN [Concomitant]
  3. amlodipine besylate 2.5 mg oral Daily [Concomitant]
  4. apixaban 5 mg oral 2 times daily [Concomitant]
  5. bisoprolol fumarate 2.5 mg oral Daily [Concomitant]
  6. clopidogrel bisulfate 75 mg oral Daily [Concomitant]
  7. ergocalciferol (vitamin D2) 50,000 Units oral [Concomitant]
  8. fludrocortisone acetate 0.1 mg TAKE 1 TABLET(0.1 MG) BY MOUTH DAILY [Concomitant]
  9. fluticasone propion/salmeterol 230-21 mcg/actuation 2 puffs BID [Concomitant]
  10. nitroglycerin 0.4 mg sublingual Every 5 min PRN [Concomitant]
  11. pantoprazole sodium 40 mg BID before meals. [Concomitant]
  12. ranolazine 1,000 mg oral 2 times daily [Concomitant]

REACTIONS (4)
  - Nausea [None]
  - Dizziness [None]
  - Vomiting [None]
  - Retching [None]

NARRATIVE: CASE EVENT DATE: 20220119
